FAERS Safety Report 8560786-1 (Version None)
Quarter: 2012Q3

REPORT INFORMATION
  Report Type: 
  Country: None (occurrence: None)
  Receive Date: 20120802
  Receipt Date: 20120727
  Transmission Date: 20120928
  Serious: No
  Sender: FDA-Public Use
  Company Number: US-PFIZER INC-2012166415

PATIENT
  Age: 69 Year
  Sex: Male

DRUGS (1)
  1. ZYVOX [Suspect]
     Dosage: 600 MG

REACTIONS (4)
  - BLISTER [None]
  - HOT FLUSH [None]
  - CHAPPED LIPS [None]
  - VOMITING [None]
